FAERS Safety Report 18227650 (Version 1)
Quarter: 2020Q3

REPORT INFORMATION
  Report Type: Other
  Country: US (occurrence: US)
  Receive Date: 20200903
  Receipt Date: 20200903
  Transmission Date: 20201103
  Serious: Yes (Death)
  Sender: FDA-Public Use
  Company Number: US-ROCHE-2667355

PATIENT

DRUGS (4)
  1. ATEZOLIZUMAB. [Suspect]
     Active Substance: ATEZOLIZUMAB
     Indication: NEOPLASM MALIGNANT
     Route: 042
  2. NIVOLUMAB [Suspect]
     Active Substance: NIVOLUMAB
     Indication: NEOPLASM MALIGNANT
     Route: 065
  3. DURVALUMAB. [Suspect]
     Active Substance: DURVALUMAB
     Indication: NEOPLASM MALIGNANT
     Route: 065
  4. PEMBROLIZUMAB. [Suspect]
     Active Substance: PEMBROLIZUMAB
     Indication: NEOPLASM MALIGNANT
     Route: 065

REACTIONS (15)
  - Pulmonary tuberculosis [Fatal]
  - Angiopathy [Unknown]
  - Rheumatic disorder [Unknown]
  - Hepatobiliary disease [Unknown]
  - Gastrointestinal disorder [Unknown]
  - Blood disorder [Unknown]
  - Tuberculosis [Fatal]
  - Nervous system disorder [Unknown]
  - Infusion related reaction [Unknown]
  - Atypical mycobacterial infection [Fatal]
  - Lung disorder [Unknown]
  - Skin disorder [Unknown]
  - Infection [Unknown]
  - Endocrine disorder [Unknown]
  - Cardiac disorder [Unknown]
